FAERS Safety Report 7500347-6 (Version None)
Quarter: 2011Q2

REPORT INFORMATION
  Report Type: 
  Country: None (occurrence: None)
  Receive Date: 20110524
  Receipt Date: 20110128
  Transmission Date: 20111010
  Serious: Yes (Hospitalization, Other)
  Sender: FDA-Public Use
  Company Number: US-BAYER-200939449NA

PATIENT
  Age: 48 Year
  Sex: Female
  Weight: 70.295 kg

DRUGS (7)
  1. YASMIN [Suspect]
     Indication: MENORRHAGIA
  2. ZOLOFT [Concomitant]
  3. ELAVIL [Concomitant]
  4. YASMIN [Suspect]
     Indication: DYSMENORRHOEA
     Route: 048
     Dates: start: 20030101, end: 20040101
  5. YASMIN [Suspect]
     Indication: PREMENSTRUAL SYNDROME
  6. NSAID'S [Concomitant]
  7. PRILOSEC [Concomitant]

REACTIONS (15)
  - SENSORY LOSS [None]
  - LATERAL MEDULLARY SYNDROME [None]
  - CEREBROVASCULAR ACCIDENT [None]
  - HYPOAESTHESIA [None]
  - GAIT DISTURBANCE [None]
  - BRAIN STEM INFARCTION [None]
  - DYSPHAGIA [None]
  - CRANIAL NERVE DISORDER [None]
  - ATAXIA [None]
  - EXERCISE TOLERANCE DECREASED [None]
  - VERTIGO [None]
  - COORDINATION ABNORMAL [None]
  - CEREBELLAR INFARCTION [None]
  - PAIN [None]
  - CEREBELLAR SYNDROME [None]
